FAERS Safety Report 8293797 (Version 10)
Quarter: 2013Q1

REPORT INFORMATION
  Report Type: Spontaneous
  Country: US (occurrence: US)
  Receive Date: 20111216
  Receipt Date: 20130124
  Transmission Date: 20140127
  Serious: Yes (Hospitalization, Congenital Anomaly, Other)
  Sender: FDA-Public Use
  Company Number: US-PFIZER INC-2011288395

PATIENT
  Age: 2 Day
  Sex: Male
  Weight: 3.8 kg

DRUGS (14)
  1. ZOLOFT [Suspect]
     Indication: DEPRESSION
     Dosage: UNK
     Route: 064
     Dates: start: 200812, end: 200904
  2. ZOLOFT [Suspect]
     Dosage: 50 MG ONE TABLET PER ORAL TWICE A DAY
     Route: 064
     Dates: start: 20090127
  3. ZOLOFT [Suspect]
     Dosage: 50 MG, 1X/DAY
     Route: 064
  4. SERTRALINE [Concomitant]
     Dosage: 50 MG, UNK
     Route: 064
     Dates: start: 20081230
  5. TRIAMCINOLONE [Concomitant]
     Dosage: UNK
     Route: 064
     Dates: start: 20090420
  6. DIPHENHYDRAMINE [Concomitant]
     Dosage: 50 MG, UNK
     Route: 064
     Dates: start: 20090423
  7. HYDROCORTISONE [Concomitant]
     Dosage: UNK
     Route: 064
     Dates: start: 20090423
  8. ALBUTEROL [Concomitant]
     Dosage: UNK
     Route: 064
     Dates: start: 20090823
  9. ADVAIR [Concomitant]
     Indication: ASTHMA
     Dosage: 2 PUFFS AS NEEDED
     Route: 064
     Dates: start: 20090823
  10. PRENATAL VITAMINS [Concomitant]
     Dosage: UNK
     Route: 064
     Dates: start: 20090823
  11. EFFEXOR [Concomitant]
     Dosage: 50 MG, 1X/DAY
     Route: 064
     Dates: start: 20090823
  12. NALBUPHINE [Concomitant]
     Indication: PAIN
     Dosage: 5 MG, EVERY HOUR
     Route: 064
     Dates: start: 20090823
  13. PROMETHAZINE [Concomitant]
     Indication: NAUSEA
     Dosage: 12.5 MG, EVERY 6 HOURS
     Route: 064
     Dates: start: 20090823
  14. PROMETHAZINE [Concomitant]
     Indication: VOMITING

REACTIONS (16)
  - Maternal exposure timing unspecified [Unknown]
  - Anomalous pulmonary venous connection [Unknown]
  - Atrial septal defect [Not Recovered/Not Resolved]
  - Atrial septal defect [Recovered/Resolved]
  - Tricuspid valve incompetence [Unknown]
  - Pulmonary valve incompetence [Unknown]
  - Heart disease congenital [Unknown]
  - Right atrial dilatation [Unknown]
  - Patent ductus arteriosus [Unknown]
  - Growth retardation [Unknown]
  - Motor dysfunction [Unknown]
  - Right ventricular hypertrophy [Unknown]
  - Dilatation ventricular [Unknown]
  - Pectus excavatum [Unknown]
  - Cardiomegaly [Recovered/Resolved]
  - Congenital scoliosis [Not Recovered/Not Resolved]
